FAERS Safety Report 15477571 (Version 2)
Quarter: 2018Q4

REPORT INFORMATION
  Report Type: Report from Study
  Country: CA (occurrence: CA)
  Receive Date: 20181009
  Receipt Date: 20181024
  Transmission Date: 20190205
  Serious: Yes (Death, Hospitalization)
  Sender: FDA-Public Use
  Company Number: CA-EMD SERONO-9046323

PATIENT
  Age: 61 Year
  Sex: Male
  Weight: 100 kg

DRUGS (11)
  1. BAVENCIO [Suspect]
     Active Substance: AVELUMAB
     Indication: NEUROENDOCRINE CARCINOMA OF THE SKIN
     Route: 042
     Dates: start: 20180724
  2. ACETAMINOPHEN. [Concomitant]
     Active Substance: ACETAMINOPHEN
     Indication: PREMEDICATION
     Route: 048
     Dates: start: 20180724
  3. HYDROMORPHONE [Concomitant]
     Active Substance: HYDROMORPHONE
     Indication: PAIN
     Route: 048
  4. HYDROMORPH CONTIN [Concomitant]
     Active Substance: HYDROMORPHONE
     Indication: PAIN
  5. KWELLADA                           /00083501/ [Concomitant]
     Indication: WOUND
     Route: 061
  6. ALLOPURINOL. [Concomitant]
     Active Substance: ALLOPURINOL
     Indication: GOUT
     Route: 048
  7. ELOCOM [Concomitant]
     Active Substance: MOMETASONE FUROATE
     Indication: WOUND
     Route: 061
  8. BENADRYL [Concomitant]
     Active Substance: DIPHENHYDRAMINE HYDROCHLORIDE
     Indication: PREMEDICATION
     Route: 042
  9. DIPHENHYDRAMINE. [Concomitant]
     Active Substance: DIPHENHYDRAMINE
     Indication: PREMEDICATION
     Route: 042
     Dates: start: 20180724
  10. INDOMETHACIN                       /00003801/ [Concomitant]
     Active Substance: INDOMETHACIN
     Indication: ANTIINFLAMMATORY THERAPY
     Dosage: AS NEEDED
     Route: 048
  11. CANDESARTAN. [Concomitant]
     Active Substance: CANDESARTAN
     Indication: HYPERTENSION
     Route: 048

REACTIONS (4)
  - Autoimmune nephritis [Fatal]
  - General physical health deterioration [Fatal]
  - Disease progression [Fatal]
  - Respiratory failure [Fatal]

NARRATIVE: CASE EVENT DATE: 201809
